FAERS Safety Report 11365906 (Version 2)
Quarter: 2015Q3

REPORT INFORMATION
  Report Type: Spontaneous
  Country: US (occurrence: US)
  Receive Date: 20150811
  Receipt Date: 20150903
  Transmission Date: 20151125
  Serious: No
  Sender: FDA-Public Use
  Company Number: US-AMGEN-USASP2015079013

PATIENT
  Age: 36 Year
  Sex: Female

DRUGS (1)
  1. ENBREL [Suspect]
     Active Substance: ETANERCEPT
     Indication: RHEUMATOID ARTHRITIS
     Dosage: UNK
     Route: 065
     Dates: start: 201410

REACTIONS (7)
  - Hot flush [Unknown]
  - Musculoskeletal disorder [Unknown]
  - Menopause [Unknown]
  - Grip strength decreased [Unknown]
  - Inappropriate schedule of drug administration [Unknown]
  - Pain in extremity [Unknown]
  - Pyrexia [Unknown]

NARRATIVE: CASE EVENT DATE: 201508
